FAERS Safety Report 8166648-6 (Version None)
Quarter: 2012Q1

REPORT INFORMATION
  Report Type: 
  Country: None (occurrence: None)
  Receive Date: 20120227
  Receipt Date: 20120221
  Transmission Date: 20120608
  Serious: No
  Sender: FDA-Public Use
  Company Number: US-BAYER-2012-017977

PATIENT
  Sex: Female
  Weight: 84 kg

DRUGS (3)
  1. LEVOTHYROXINE SODIUM [Concomitant]
  2. HYDROCHLOROTHIAZIDE [Concomitant]
  3. ALEVE (CAPLET) [Suspect]
     Indication: ANALGESIC THERAPY
     Dosage: 2 TAB TWICE DAILY
     Route: 048
     Dates: start: 20120212, end: 20120221

REACTIONS (2)
  - CONTUSION [None]
  - PAIN [None]
